FAERS Safety Report 6256635-7 (Version None)
Quarter: 2009Q3

REPORT INFORMATION
  Report Type: 
  Country: None (occurrence: None)
  Receive Date: 20090706
  Receipt Date: 20090701
  Transmission Date: 20100115
  Serious: Yes (Other)
  Sender: FDA-Public Use
  Company Number: JP-JNJFOC-20090701004

PATIENT
  Age: 3 Year

DRUGS (1)
  1. LOPEMIN [Suspect]
     Indication: DIARRHOEA
     Route: 048

REACTIONS (3)
  - ANURIA [None]
  - DYSURIA [None]
  - URINARY RETENTION [None]
